FAERS Safety Report 4771195-5 (Version None)
Quarter: 2005Q3

REPORT INFORMATION
  Report Type: 
  Country: None (occurrence: None)
  Receive Date: 20050912
  Receipt Date: 20050728
  Transmission Date: 20060218
  Serious: Yes (Hospitalization, Other)
  Sender: FDA-Public Use
  Company Number: 2004-00547

PATIENT
  Age: 58 Year
  Sex: Female
  Weight: 90.7 kg

DRUGS (38)
  1. VELCADE [Suspect]
     Indication: MULTIPLE MYELOMA
     Dosage: 2.60 MG, INTRAVENOUS; SEE IMAGE
     Route: 042
     Dates: start: 20040308, end: 20040429
  2. VELCADE [Suspect]
     Indication: MULTIPLE MYELOMA
     Dosage: 2.60 MG, INTRAVENOUS; SEE IMAGE
     Route: 042
     Dates: start: 20040622, end: 20040702
  3. VELCADE [Suspect]
     Indication: MULTIPLE MYELOMA
     Dosage: 2.60 MG, INTRAVENOUS; SEE IMAGE
     Route: 042
     Dates: start: 20040824, end: 20040922
  4. VELCADE [Suspect]
     Indication: MULTIPLE MYELOMA
     Dosage: 2.60 MG, INTRAVENOUS; SEE IMAGE
     Route: 042
     Dates: start: 20041012, end: 20041130
  5. VELCADE [Suspect]
     Indication: MULTIPLE MYELOMA
     Dosage: 2.60 MG, INTRAVENOUS; SEE IMAGE
     Route: 042
     Dates: start: 20041130, end: 20050425
  6. THALIDOMIDE [Concomitant]
  7. AREDIA [Concomitant]
  8. ACTOS /USA/ (PIOGLITAZONE HYDROCHLORIDE) [Concomitant]
  9. HYDROCHLOROTHIAZIDE [Concomitant]
  10. INDERAL [Concomitant]
  11. POTASSIUM (POTASSIUM) [Concomitant]
  12. SYNTHROID [Concomitant]
  13. VITAMIN B12 [Concomitant]
  14. HUMALOG [Concomitant]
  15. LASIX [Concomitant]
  16. PREDNISONE [Concomitant]
  17. PROCRIT [Concomitant]
  18. ZOFRAN [Concomitant]
  19. DECADRON [Concomitant]
  20. PREVACID [Concomitant]
  21. NEURONTIN [Concomitant]
  22. ALBUTEROL [Concomitant]
  23. TALWIN [Concomitant]
  24. COMPAZINE [Concomitant]
  25. PROVIGIL [Concomitant]
  26. KLONOPIN [Concomitant]
  27. VITAMIN C (ASCORBIC ACID) [Concomitant]
  28. MULTIVTAMIN (VITAMINS NOS) [Concomitant]
  29. SOLU-MEDROL [Concomitant]
  30. LEXAPRO [Concomitant]
  31. OXYCONTIN [Concomitant]
  32. ULTRAM [Concomitant]
  33. ELISTAT EYE DROPS [Concomitant]
  34. SYSTAN EYE DROPS [Concomitant]
  35. DARVOCET-N (PARACETAMOL, DEXTROPROPOXYPHENE NAPSILATE) [Concomitant]
  36. OXYTROL [Concomitant]
  37. SOLU-MEDROL [Concomitant]
  38. LANTUS [Concomitant]

REACTIONS (4)
  - ABDOMINAL PAIN [None]
  - CONSTIPATION [None]
  - DIARRHOEA [None]
  - DISEASE PROGRESSION [None]
